FAERS Safety Report 22977834 (Version 2)
Quarter: 2023Q4

REPORT INFORMATION
  Report Type: Spontaneous
  Country: US (occurrence: US)
  Receive Date: 20230925
  Receipt Date: 20231026
  Transmission Date: 20240109
  Serious: No
  Sender: FDA-Public Use
  Company Number: US-SA-SAC20230922001000

PATIENT
  Sex: Male

DRUGS (6)
  1. ALPROLIX [Suspect]
     Active Substance: EFTRENONACOG ALFA
     Indication: Factor IX deficiency
     Dosage: 495 U (446-544), QW FOR PROPHYLAXIS
     Route: 042
     Dates: start: 202304
  2. ALPROLIX [Suspect]
     Active Substance: EFTRENONACOG ALFA
     Indication: Factor IX deficiency
     Dosage: 495 U (446-544), QW FOR PROPHYLAXIS
     Route: 042
     Dates: start: 202304
  3. ALPROLIX [Suspect]
     Active Substance: EFTRENONACOG ALFA
     Dosage: 495 U (446-544), EVERY 24 TO 48 HOURS FOR EARLY JOINT/SOFT TISSUE BLEEDS AS DIRECTED (PRN)
     Route: 042
     Dates: start: 202304
  4. ALPROLIX [Suspect]
     Active Substance: EFTRENONACOG ALFA
     Dosage: 495 U (446-544), EVERY 24 TO 48 HOURS FOR EARLY JOINT/SOFT TISSUE BLEEDS AS DIRECTED (PRN)
     Route: 042
     Dates: start: 202304
  5. ALPROLIX [Suspect]
     Active Substance: EFTRENONACOG ALFA
     Dosage: 785 (706-863) EVERY 24-48 AS DIRECTED (PRN)
     Route: 042
     Dates: start: 202304
  6. ALPROLIX [Suspect]
     Active Substance: EFTRENONACOG ALFA
     Dosage: 785 (706-863) EVERY 24-48 AS DIRECTED (PRN)
     Route: 042
     Dates: start: 202304

REACTIONS (2)
  - Upper limb fracture [Unknown]
  - COVID-19 [Unknown]

NARRATIVE: CASE EVENT DATE: 20230101
